FAERS Safety Report 11246572 (Version 1)
Quarter: 2015Q3

REPORT INFORMATION
  Report Type: Spontaneous
  Country: JP (occurrence: JP)
  Receive Date: 20150708
  Receipt Date: 20150708
  Transmission Date: 20151125
  Serious: Yes (Other)
  Sender: FDA-Public Use
  Company Number: PHHY2015JP080011

PATIENT
  Age: 49 Year
  Sex: Female

DRUGS (3)
  1. 5-FLUOROURACIL [Suspect]
     Active Substance: FLUOROURACIL
     Indication: PRODUCT USED FOR UNKNOWN INDICATION
     Dosage: 400 UNK, UNK
     Route: 065
  2. OXALIPLATIN. [Suspect]
     Active Substance: OXALIPLATIN
     Indication: PRODUCT USED FOR UNKNOWN INDICATION
     Dosage: 85 MG/M2, UNK
     Route: 065
  3. LEUCOVORIN CALCIUM. [Suspect]
     Active Substance: LEUCOVORIN CALCIUM
     Indication: PRODUCT USED FOR UNKNOWN INDICATION
     Dosage: 200 MG/M2, UNK
     Route: 065

REACTIONS (5)
  - Metabolic acidosis [Recovered/Resolved]
  - Disseminated intravascular coagulation [Recovered/Resolved]
  - Feeling cold [Recovered/Resolved]
  - Faeces discoloured [Recovered/Resolved]
  - Altered state of consciousness [Recovered/Resolved]
